FAERS Safety Report 4353107-1 (Version None)
Quarter: 2004Q2

REPORT INFORMATION
  Report Type: 
  Country: None (occurrence: None)
  Receive Date: 20040429
  Receipt Date: 20040414
  Transmission Date: 20050107
  Serious: No
  Sender: FDA-Public Use
  Company Number: 2004AP02249

PATIENT
  Age: 77 Year
  Sex: Male

DRUGS (1)
  1. ANAPEINE [Suspect]
     Indication: EPIDURAL ANAESTHESIA
     Dosage: 3 ML/HR ED

REACTIONS (6)
  - ANAESTHETIC COMPLICATION [None]
  - ASTHENIA [None]
  - DYSURIA [None]
  - MEDICATION ERROR [None]
  - PHANTOM PAIN [None]
  - URINARY TRACT INFECTION [None]
